FAERS Safety Report 15562271 (Version 1)
Quarter: 2018Q4

REPORT INFORMATION
  Report Type: Spontaneous
  Country: US (occurrence: US)
  Receive Date: 20181029
  Receipt Date: 20181029
  Transmission Date: 20190205
  Serious: No
  Sender: FDA-Public Use
  Company Number: None

PATIENT
  Age: 62 Year
  Sex: Female
  Weight: 63 kg

DRUGS (5)
  1. TERBINAFINE HCL 250 MG [Suspect]
     Active Substance: TERBINAFINE HYDROCHLORIDE
     Indication: ONYCHOMYCOSIS
     Dosage: ?          QUANTITY:250 TABLET(S);?
     Route: 048
  2. MELATONIN [Concomitant]
     Active Substance: MELATONIN
  3. PROBIOTIC [Concomitant]
     Active Substance: PROBIOTICS NOS
  4. CITRACAL + D [Concomitant]
     Active Substance: CALCIUM CITRATE\VITAMIN D
  5. CENTRUM SILVER WOMENS 50 + MULTI VITAMIN [Concomitant]

REACTIONS (5)
  - Depressed mood [None]
  - Weight decreased [None]
  - Ageusia [None]
  - Dysgeusia [None]
  - Therapy cessation [None]

NARRATIVE: CASE EVENT DATE: 20181022
